FAERS Safety Report 7633318-X (Version None)
Quarter: 2011Q3

REPORT INFORMATION
  Report Type: 
  Country: None (occurrence: None)
  Receive Date: 20110725
  Receipt Date: 20100707
  Transmission Date: 20111222
  Serious: No
  Sender: FDA-Public Use
  Company Number: US-BRISTOL-MYERS SQUIBB COMPANY-15162340

PATIENT
  Age: 69 Year
  Sex: Female

DRUGS (1)
  1. SPRYCEL [Suspect]
     Indication: CHRONIC MYELOID LEUKAEMIA
     Route: 048
     Dates: start: 20100223

REACTIONS (1)
  - BREAST DISCHARGE [None]
